FAERS Safety Report 21686595 (Version 8)
Quarter: 2023Q2

REPORT INFORMATION
  Report Type: Other
  Country: GB (occurrence: None)
  Receive Date: 20221206
  Receipt Date: 20230530
  Transmission Date: 20230722
  Serious: Yes (Hospitalization)
  Sender: FDA-Public Use
  Company Number: GB-ROCHE-3075091

PATIENT
  Age: 44 Year
  Sex: Female

DRUGS (73)
  1. TRASTUZUMAB [Suspect]
     Active Substance: TRASTUZUMAB
     Indication: HER2 positive breast cancer
     Route: 058
     Dates: start: 20180216, end: 20190812
  2. TRASTUZUMAB [Suspect]
     Active Substance: TRASTUZUMAB
     Route: 058
     Dates: start: 20220617, end: 20220618
  3. TRASTUZUMAB [Suspect]
     Active Substance: TRASTUZUMAB
     Route: 058
     Dates: start: 20220708
  4. PACLITAXEL [Suspect]
     Active Substance: PACLITAXEL
     Indication: HER2 positive breast cancer
     Route: 042
     Dates: start: 20180216, end: 20180713
  5. ADO-TRASTUZUMAB EMTANSINE [Suspect]
     Active Substance: ADO-TRASTUZUMAB EMTANSINE
     Indication: HER2 positive breast cancer
     Route: 042
     Dates: start: 20210716, end: 20211203
  6. ADO-TRASTUZUMAB EMTANSINE [Suspect]
     Active Substance: ADO-TRASTUZUMAB EMTANSINE
     Route: 042
     Dates: start: 20190906, end: 20210715
  7. ADO-TRASTUZUMAB EMTANSINE [Suspect]
     Active Substance: ADO-TRASTUZUMAB EMTANSINE
     Route: 042
     Dates: start: 20220303, end: 20220416
  8. CAPECITABINE [Suspect]
     Active Substance: CAPECITABINE
     Indication: HER2 positive breast cancer
     Route: 048
     Dates: start: 20220617, end: 20221125
  9. TUCATINIB [Suspect]
     Active Substance: TUCATINIB
     Indication: HER2 positive breast cancer
     Route: 048
     Dates: start: 20220617, end: 20221006
  10. TUCATINIB [Suspect]
     Active Substance: TUCATINIB
     Route: 048
     Dates: start: 20221014, end: 20221201
  11. DEXAMETHASONE [Concomitant]
     Active Substance: DEXAMETHASONE
     Route: 042
     Dates: start: 20180216, end: 20180713
  12. DEXAMETHASONE [Concomitant]
     Active Substance: DEXAMETHASONE
     Route: 048
     Dates: start: 20180110, end: 20180130
  13. DEXAMETHASONE [Concomitant]
     Active Substance: DEXAMETHASONE
     Route: 048
     Dates: start: 20180131, end: 20180206
  14. DEXAMETHASONE [Concomitant]
     Active Substance: DEXAMETHASONE
     Route: 048
     Dates: start: 20180315
  15. DEXAMETHASONE [Concomitant]
     Active Substance: DEXAMETHASONE
     Route: 048
     Dates: end: 20220603
  16. NAPROXEN [Concomitant]
     Active Substance: NAPROXEN
     Route: 048
  17. TRAMADOL [Concomitant]
     Active Substance: TRAMADOL
     Route: 065
  18. ESCITALOPRAM [Concomitant]
     Active Substance: ESCITALOPRAM OXALATE
     Route: 048
     Dates: start: 20200108
  19. ESCITALOPRAM [Concomitant]
     Active Substance: ESCITALOPRAM OXALATE
     Route: 048
     Dates: start: 20200109, end: 20200204
  20. COCODAMOL [Concomitant]
     Active Substance: ACETAMINOPHEN\CODEINE PHOSPHATE
     Dosage: 1 OR 2 TABLETS PRN
     Route: 048
     Dates: start: 20180130
  21. METOCLOPRAMIDE [Concomitant]
     Active Substance: METOCLOPRAMIDE
     Route: 048
     Dates: start: 20180216, end: 20180713
  22. METOCLOPRAMIDE [Concomitant]
     Active Substance: METOCLOPRAMIDE
     Route: 048
     Dates: start: 20180714
  23. RANITIDINE [Concomitant]
     Active Substance: RANITIDINE
  24. CHLORPHENIRAMINE MALEATE [Concomitant]
     Active Substance: CHLORPHENIRAMINE MALEATE
  25. CHOLECALCIFEROL [Concomitant]
     Active Substance: CHOLECALCIFEROL
  26. OMEPRAZOLE [Concomitant]
     Active Substance: OMEPRAZOLE
  27. PREGABALIN [Concomitant]
     Active Substance: PREGABALIN
  28. AMITRIPTYLINE [Concomitant]
     Active Substance: AMITRIPTYLINE
  29. FUROSEMIDE [Concomitant]
     Active Substance: FUROSEMIDE
     Route: 048
     Dates: start: 20180209, end: 20180219
  30. FUROSEMIDE [Concomitant]
     Active Substance: FUROSEMIDE
     Route: 048
     Dates: start: 20180219, end: 20200408
  31. ZOLPIDEM [Concomitant]
     Active Substance: ZOLPIDEM TARTRATE
  32. DOCUSATE [Concomitant]
     Active Substance: DOCUSATE
  33. POLYETHYLENE GLYCOLS [Concomitant]
     Active Substance: POLYETHYLENE GLYCOLS
  34. MORPHINE SULFATE [Concomitant]
     Active Substance: MORPHINE SULFATE
  35. LORAZEPAM [Concomitant]
     Active Substance: LORAZEPAM
     Route: 048
     Dates: end: 20200205
  36. LORAZEPAM [Concomitant]
     Active Substance: LORAZEPAM
     Route: 048
     Dates: start: 20200604
  37. ACETAMINOPHEN [Concomitant]
     Active Substance: ACETAMINOPHEN
  38. LIDOCAINE [Concomitant]
     Active Substance: LIDOCAINE
  39. ZOPICLONE [Concomitant]
     Active Substance: ZOPICLONE
     Route: 048
     Dates: end: 20180219
  40. MORPHINE [Concomitant]
     Active Substance: MORPHINE
     Dates: start: 20180205
  41. ZOLEDRONIC ACID [Concomitant]
     Active Substance: ZOLEDRONIC ACID
  42. CALCIUM CARBONATE\CHOLECALCIFEROL [Concomitant]
     Active Substance: CALCIUM CARBONATE\CHOLECALCIFEROL
  43. CHLORHEXIDINE [Concomitant]
     Active Substance: CHLORHEXIDINE
  44. FLUCLOXACILLIN [Concomitant]
     Active Substance: FLUCLOXACILLIN
     Route: 048
     Dates: start: 20200311, end: 20200318
  45. CLOTRIMAZOLE [Concomitant]
     Active Substance: CLOTRIMAZOLE
  46. ZOLEDRONIC ACID [Concomitant]
     Active Substance: ZOLEDRONIC ACID
  47. BISACODYL [Concomitant]
     Active Substance: BISACODYL
  48. BENZYDAMINE [Concomitant]
     Active Substance: BENZYDAMINE
  49. HYDROCORTISONE [Concomitant]
     Active Substance: HYDROCORTISONE
  50. DIAZEPAM [Concomitant]
     Active Substance: DIAZEPAM
     Route: 048
     Dates: start: 20191212, end: 20200205
  51. DIAZEPAM [Concomitant]
     Active Substance: DIAZEPAM
     Route: 048
     Dates: start: 20200206
  52. MIRTAZAPINE [Concomitant]
     Active Substance: MIRTAZAPINE
  53. IBUPROFEN [Concomitant]
     Active Substance: IBUPROFEN
  54. NYSTATIN [Concomitant]
     Active Substance: NYSTATIN
  55. EXOCREAM [Concomitant]
  56. CLARITHROMYCIN [Concomitant]
     Active Substance: CLARITHROMYCIN
  57. FEXOFENADINE [Concomitant]
     Active Substance: FEXOFENADINE HYDROCHLORIDE
  58. LORATADINE [Concomitant]
     Active Substance: LORATADINE
  59. TRIMOVATE [Concomitant]
     Active Substance: CLOBETASONE BUTYRATE\NYSTATIN\OXYTETRACYCLINE CALCIUM
  60. BETAMETHASONE VALERATE [Concomitant]
     Active Substance: BETAMETHASONE VALERATE
  61. YELLOW SOFT PARAFFIN [Concomitant]
  62. DERMOL [Concomitant]
     Active Substance: BENZALKONIUM CHLORIDE\CHLORHEXIDINE HYDROCHLORIDE\ISOPROPYL MYRISTATE\PARAFFIN
  63. DOXYCYCLINE [Concomitant]
     Active Substance: DOXYCYCLINE
  64. CHLORHEXIDINE GLUCONATE [Concomitant]
     Active Substance: CHLORHEXIDINE GLUCONATE
  65. LAXIDO ORANGE [Concomitant]
  66. PARAFFIN\WAX, EMULSIFYING [Concomitant]
     Active Substance: PARAFFIN\WAX, EMULSIFYING
  67. LIDOCAINE HYDROCHLORIDE [Concomitant]
     Active Substance: LIDOCAINE HYDROCHLORIDE
  68. HEPARIN SODIUM [Concomitant]
     Active Substance: HEPARIN SODIUM
     Route: 042
     Dates: start: 20210903
  69. SODIUM CHLORIDE [Concomitant]
     Active Substance: SODIUM CHLORIDE
  70. AMOXICILLIN [Concomitant]
     Active Substance: AMOXICILLIN
  71. FOLIC ACID [Concomitant]
     Active Substance: FOLIC ACID
  72. SERTRALINE [Concomitant]
     Active Substance: SERTRALINE HYDROCHLORIDE
     Indication: Depression
     Route: 048
     Dates: start: 20221007
  73. DOCUSATE SODIUM [Concomitant]
     Active Substance: DOCUSATE SODIUM
     Route: 048
     Dates: start: 20221129

REACTIONS (3)
  - Thrombocytopenia [Recovered/Resolved]
  - Epistaxis [Recovered/Resolved]
  - Pancytopenia [Not Recovered/Not Resolved]

NARRATIVE: CASE EVENT DATE: 20220127
